FAERS Safety Report 11754909 (Version 2)
Quarter: 2015Q4

REPORT INFORMATION
  Report Type: Report from Study
  Country: US (occurrence: US)
  Receive Date: 20151119
  Receipt Date: 20151130
  Transmission Date: 20160304
  Serious: Yes (Hospitalization)
  Sender: FDA-Public Use
  Company Number: US-ACTELION-A-US2015-127348

PATIENT
  Age: 66 Year
  Sex: Female

DRUGS (2)
  1. VENTAVIS [Suspect]
     Active Substance: ILOPROST
     Indication: PULMONARY ARTERIAL HYPERTENSION
     Dosage: 5 MCG, 6-9 X/DAY
     Route: 055
     Dates: start: 20151009
  2. SILDENAFIL. [Concomitant]
     Active Substance: SILDENAFIL

REACTIONS (7)
  - Fall [Unknown]
  - Contusion [Unknown]
  - Head injury [Unknown]
  - Eye swelling [Unknown]
  - Loss of consciousness [Unknown]
  - Cough [Unknown]
  - Syncope [Unknown]
